FAERS Safety Report 5135441-0 (Version None)
Quarter: 2006Q4

REPORT INFORMATION
  Report Type: 
  Country: None (occurrence: None)
  Receive Date: 20061026
  Receipt Date: 20061018
  Transmission Date: 20070319
  Serious: Yes (Hospitalization)
  Sender: FDA-Public Use
  Company Number: FR-GLAXOSMITHKLINE-B0443669A

PATIENT
  Sex: Female
  Weight: 120 kg

DRUGS (1)
  1. ARIXTRA [Suspect]
     Indication: PHLEBITIS
     Dosage: 7.5MG PER DAY
     Route: 058
     Dates: start: 20060101, end: 20061001

REACTIONS (3)
  - ANAEMIA [None]
  - THROMBOCYTHAEMIA [None]
  - TRAUMATIC HAEMATOMA [None]
